FAERS Safety Report 26112748 (Version 2)
Quarter: 2025Q4

REPORT INFORMATION
  Report Type: Report from Study
  Country: GA (occurrence: GA)
  Receive Date: 20251202
  Receipt Date: 20251208
  Transmission Date: 20260118
  Serious: Yes (Death, Other)
  Sender: SANOFI AVENTIS
  Company Number: GA-SA-SAC20240530000868

PATIENT
  Age: 25 Year
  Sex: Male
  Weight: 55 kg

DRUGS (2)
  1. FEXINIDAZOLE [Suspect]
     Active Substance: FEXINIDAZOLE
     Indication: African trypanosomiasis
     Dosage: 3 DF, QD
     Route: 065
     Dates: start: 20220819
  2. FEXINIDAZOLE [Suspect]
     Active Substance: FEXINIDAZOLE
     Dosage: 2 DF, QD
     Route: 065
     Dates: end: 20250822

REACTIONS (6)
  - Asthenia [Fatal]
  - Pneumonia [Fatal]
  - CSF white blood cell count increased [Unknown]
  - Headache [Unknown]
  - Insomnia [Recovered/Resolved]
  - Tremor [Recovered/Resolved]

NARRATIVE: CASE EVENT DATE: 20220819
